FAERS Safety Report 12105612 (Version 1)
Quarter: 2016Q1

REPORT INFORMATION
  Report Type: Spontaneous
  Country: US (occurrence: US)
  Receive Date: 20160223
  Receipt Date: 20160223
  Transmission Date: 20160526
  Serious: No
  Sender: FDA-Public Use
  Company Number: US-TARO-2015TAR01120

PATIENT
  Age: 27 Year
  Sex: Male
  Weight: 81.63 kg

DRUGS (6)
  1. KEVEYIS [Suspect]
     Active Substance: DICHLORPHENAMIDE
     Dosage: 50 MG, 1X/DAY IN THE EVENING
     Route: 048
     Dates: start: 2015
  2. KEVEYIS [Suspect]
     Active Substance: DICHLORPHENAMIDE
     Dosage: 25 MG, 1X/DAY IN THE MORNING
     Route: 048
     Dates: start: 2015
  3. HYDROCODONE [Concomitant]
     Active Substance: HYDROCODONE
  4. KEVEYIS [Suspect]
     Active Substance: DICHLORPHENAMIDE
     Indication: FAMILIAL PERIODIC PARALYSIS
     Dosage: 50 MG, 2X/DAY
     Route: 048
     Dates: start: 201511, end: 201511
  5. KEVEYIS [Suspect]
     Active Substance: DICHLORPHENAMIDE
     Dosage: 25 MG, 2X/DAY
     Route: 048
     Dates: start: 201511, end: 2015
  6. DIAZEPAM. [Concomitant]
     Active Substance: DIAZEPAM
     Dosage: 1 MG, 2X/DAY AS NEEDED

REACTIONS (1)
  - Dizziness [Recovering/Resolving]

NARRATIVE: CASE EVENT DATE: 201511
